FAERS Safety Report 6575828-2 (Version None)
Quarter: 2010Q1

REPORT INFORMATION
  Report Type: 
  Country: None (occurrence: None)
  Receive Date: 20100209
  Receipt Date: 20100117
  Transmission Date: 20100710
  Serious: Yes (Hospitalization, Other)
  Sender: FDA-Public Use
  Company Number: US-BAYER-201011267BCC

PATIENT
  Age: 30 Year
  Sex: Male

DRUGS (2)
  1. ALKA SELTZER [Suspect]
     Indication: ABDOMINAL DISCOMFORT
     Dosage: TOTAL DAILY DOSE: 2 DF  UNIT DOSE: 1 DF
     Route: 048
     Dates: start: 20010101
  2. VITAMIN C [Concomitant]
     Route: 065

REACTIONS (3)
  - BLOOD PRESSURE INCREASED [None]
  - PALPITATIONS [None]
  - SINUS TACHYCARDIA [None]
